FAERS Safety Report 7560652-4 (Version None)
Quarter: 2011Q2

REPORT INFORMATION
  Report Type: 
  Country: None (occurrence: None)
  Receive Date: 20110621
  Receipt Date: 20110610
  Transmission Date: 20111010
  Serious: Yes (Other)
  Sender: FDA-Public Use
  Company Number: US-PERRIGO-11US004829

PATIENT
  Age: 81 Year
  Sex: Female

DRUGS (3)
  1. ACETAMINOPHEN [Suspect]
     Dosage: 1 G, EVERY 6 HOURS, PRN
     Route: 048
  2. ACETAMINOPHEN [Suspect]
     Indication: PYREXIA
     Dosage: 1 G, EVERY 6 HOURS
     Route: 048
  3. WARFARIN SODIUM [Suspect]
     Indication: AORTIC VALVE REPLACEMENT
     Dosage: 4 TO 4.5 MG, QD
     Route: 048

REACTIONS (4)
  - ENDOCARDITIS [None]
  - DRUG INTERACTION [None]
  - GASTROINTESTINAL HAEMORRHAGE [None]
  - INTERNATIONAL NORMALISED RATIO INCREASED [None]
